FAERS Safety Report 6018362-0 (Version None)
Quarter: 2008Q4

REPORT INFORMATION
  Report Type: 
  Country: None (occurrence: None)
  Receive Date: 20081223
  Receipt Date: 20081211
  Transmission Date: 20090506
  Serious: Yes (Disabling, Other)
  Sender: FDA-Public Use
  Company Number: US-PFIZER INC-2008151890

PATIENT
  Sex: Male

DRUGS (3)
  1. VIAGRA [Suspect]
     Indication: ERECTILE DYSFUNCTION
     Dosage: 100 MG, UNK
     Route: 048
     Dates: start: 20010701, end: 20041101
  2. PRINZIDE [Concomitant]
     Dosage: UNK
     Dates: start: 19970501
  3. VERAPAMIL HYDROCHLORIDE [Concomitant]
     Dosage: 250 MG, UNK
     Dates: start: 20000901

REACTIONS (3)
  - BLINDNESS [None]
  - EPISTAXIS [None]
  - MIGRAINE [None]
